FAERS Safety Report 4457465-9 (Version None)
Quarter: 2004Q3

REPORT INFORMATION
  Report Type: 
  Country: None (occurrence: None)
  Receive Date: 20040922
  Receipt Date: 20040909
  Transmission Date: 20050211
  Serious: Yes (Hospitalization, Other)
  Sender: FDA-Public Use
  Company Number: 2004058768

PATIENT
  Age: 58 Year
  Sex: Male
  Weight: 117.9352 kg

DRUGS (14)
  1. DILANTIN KAPSEAL [Suspect]
     Indication: CONVULSION
     Dosage: ORAL
     Route: 047
  2. FLUTICASONE PROPIONATE [Concomitant]
  3. MONTELUKAST SODIUM (MONTELUKAST SODIUM) [Concomitant]
  4. LANSOPRAZOLE [Concomitant]
  5. VALSARTAN (VALSARTAN) [Concomitant]
  6. DYAZIDE [Concomitant]
  7. AZELASTINE HYDROCHLORIDE (AZELASTINE HYDROCHLORIDE) [Concomitant]
  8. IRON (IRON) [Concomitant]
  9. ASCORBIC ACID [Concomitant]
  10. GLUCOSAMINE (GLUCOSAMINE) [Concomitant]
  11. TOCOPHEROL CONCENTRATE CAP [Concomitant]
  12. MULTIVITAMINS (ASCORBIC ACID, ERGOCLACIFEROL, FOLIC ACID, NICOTINAMIDE [Concomitant]
  13. CYANOCOBALAMIN (CYANOCOBALAMIN) [Concomitant]
  14. GARLIC (GARLIC) [Concomitant]

REACTIONS (9)
  - ANTICONVULSANT DRUG LEVEL ABOVE THERAPEUTIC [None]
  - CONDITION AGGRAVATED [None]
  - CONFUSIONAL STATE [None]
  - CONTUSION [None]
  - CONVULSION [None]
  - FALL [None]
  - MUSCLE SPASMS [None]
  - SPEECH DISORDER [None]
  - TINNITUS [None]
